FAERS Safety Report 6544135-6 (Version None)
Quarter: 2010Q1

REPORT INFORMATION
  Report Type: 
  Country: None (occurrence: None)
  Receive Date: 20100119
  Receipt Date: 20100119
  Transmission Date: 20100710
  Serious: Yes (Other)
  Sender: FDA-Public Use
  Company Number: None

PATIENT
  Age: 11 Year
  Sex: Male
  Weight: 52.1637 kg

DRUGS (1)
  1. MOTRIN [Suspect]
     Indication: HEADACHE
     Dosage: 2 TABLETS TWICE DAILY DAILY FOR 2 WEEKS PO
     Route: 048
     Dates: start: 20100102, end: 20100115

REACTIONS (2)
  - DIARRHOEA [None]
  - GASTROINTESTINAL DISORDER [None]
